FAERS Safety Report 11179978 (Version 1)
Quarter: 2015Q2

REPORT INFORMATION
  Report Type: Spontaneous
  Country: US (occurrence: US)
  Receive Date: 20150611
  Receipt Date: 20150611
  Transmission Date: 20150821
  Serious: No
  Sender: FDA-Public Use
  Company Number: US-TEVA-560861USA

PATIENT
  Age: 51 Year
  Sex: Male

DRUGS (1)
  1. CAPECITABINE. [Suspect]
     Active Substance: CAPECITABINE
     Indication: LIP AND/OR ORAL CAVITY CANCER
     Dosage: TAKE 4 TABLETS TWICE A DAY FOR 14 DAYS ON AND 7 DAYS OFF AS DIRECTED
     Route: 048

REACTIONS (1)
  - Asthenia [Unknown]
